FAERS Safety Report 6996502-4 (Version None)
Quarter: 2010Q3

REPORT INFORMATION
  Report Type: 
  Country: None (occurrence: None)
  Receive Date: 20100918
  Receipt Date: 20090304
  Transmission Date: 20110219
  Serious: No
  Sender: FDA-Public Use
  Company Number: US-WYE-H08472009

PATIENT
  Sex: Female

DRUGS (2)
  1. EFFEXOR XR [Suspect]
     Indication: ANXIETY
     Route: 048
     Dates: start: 20090302
  2. EFFEXOR XR [Suspect]
     Indication: DEPRESSION

REACTIONS (4)
  - CONDITION AGGRAVATED [None]
  - CONSTIPATION [None]
  - DRY MOUTH [None]
  - HANGOVER [None]
